FAERS Safety Report 5017850-3 (Version None)
Quarter: 2006Q2

REPORT INFORMATION
  Report Type: 
  Country: None (occurrence: None)
  Receive Date: 20060530
  Receipt Date: 20060515
  Transmission Date: 20061013
  Serious: Yes (Hospitalization, Other)
  Sender: FDA-Public Use
  Company Number: 2006064602

PATIENT
  Sex: Male
  Weight: 127.0072 kg

DRUGS (9)
  1. PROCARDIA [Suspect]
     Indication: BLOOD PRESSURE
  2. LYRICA [Suspect]
     Indication: PAIN
     Dosage: 50 MG
     Dates: start: 20060101
  3. OXYCONTIN [Suspect]
     Indication: PAIN
  4. PLAVIX [Concomitant]
  5. PERCOCET [Concomitant]
  6. ANTIHYPERTENSIVES [Concomitant]
  7. GABAPENTIN (TEVA) (GABAPENTIN) [Concomitant]
  8. VITAMIN B12 FOR INJECTION (CYANOCOBALAMIN) [Concomitant]
  9. LUNESTA [Concomitant]

REACTIONS (11)
  - BLOOD PRESSURE INCREASED [None]
  - CEREBROVASCULAR ACCIDENT [None]
  - DRUG DOSE OMISSION [None]
  - DRUG INEFFECTIVE [None]
  - INSOMNIA [None]
  - MALAISE [None]
  - MEMORY IMPAIRMENT [None]
  - REPETITIVE SPEECH [None]
  - SOMNOLENCE [None]
  - TRANSIENT ISCHAEMIC ATTACK [None]
  - WEIGHT INCREASED [None]
